FAERS Safety Report 22521821 (Version 1)
Quarter: 2023Q2

REPORT INFORMATION
  Report Type: Report from Study
  Country: US (occurrence: US)
  Receive Date: 20230605
  Receipt Date: 20230605
  Transmission Date: 20230722
  Serious: Yes (Other)
  Sender: FDA-Public Use
  Company Number: US-002147023-NVSC2023US122099

PATIENT
  Sex: Male
  Weight: 104.33 kg

DRUGS (7)
  1. DOXYCYCLINE [Suspect]
     Active Substance: DOXYCYCLINE
     Indication: Hidradenitis
     Dosage: UNK
     Route: 065
  2. ISOTRETINOIN [Suspect]
     Active Substance: ISOTRETINOIN
     Indication: Hidradenitis
     Dosage: UNK
     Route: 065
  3. RIFAMPIN [Suspect]
     Active Substance: RIFAMPIN
     Indication: Product used for unknown indication
     Dosage: UNK
     Route: 065
  4. HUMIRA [Suspect]
     Active Substance: ADALIMUMAB
     Indication: Product used for unknown indication
     Dosage: UNK
     Route: 065
  5. AUGMENTIN [Concomitant]
     Active Substance: AMOXICILLIN\CLAVULANATE POTASSIUM
     Indication: Product used for unknown indication
     Dosage: UNK
     Route: 065
  6. STELARA [Concomitant]
     Active Substance: USTEKINUMAB
     Indication: Product used for unknown indication
     Dosage: UNK
     Route: 065
  7. HIBICLENS [Concomitant]
     Active Substance: CHLORHEXIDINE GLUCONATE
     Indication: Product used for unknown indication
     Dosage: UNK
     Route: 065

REACTIONS (14)
  - Psoriatic arthropathy [Unknown]
  - Arthralgia [Unknown]
  - Condition aggravated [Unknown]
  - Eye disorder [Unknown]
  - Contusion [Unknown]
  - Purulent discharge [Unknown]
  - Inflammation [Unknown]
  - Scar [Unknown]
  - Nodule [Unknown]
  - Groin infection [Unknown]
  - Skin papilloma [Unknown]
  - Drug intolerance [Unknown]
  - Bacterial infection [Unknown]
  - Drug ineffective [Unknown]
